FAERS Safety Report 17111802 (Version 1)
Quarter: 2019Q4

REPORT INFORMATION
  Report Type: Spontaneous
  Country: US (occurrence: US)
  Receive Date: 20191203
  Receipt Date: 20191203
  Transmission Date: 20200122
  Serious: Yes (Hospitalization)
  Sender: FDA-Public Use
  Company Number: None

PATIENT
  Age: 26 Year

DRUGS (1)
  1. CARAFATE [Suspect]
     Active Substance: SUCRALFATE

REACTIONS (1)
  - Gastritis [None]

NARRATIVE: CASE EVENT DATE: 20191203
